FAERS Safety Report 23153464 (Version 3)
Quarter: 2023Q4

REPORT INFORMATION
  Report Type: Spontaneous
  Country: CA (occurrence: CA)
  Receive Date: 20231107
  Receipt Date: 20231201
  Transmission Date: 20240109
  Serious: Yes (Death, Hospitalization, Other)
  Sender: FDA-Public Use
  Company Number: CA-PFIZER INC-202300353246

PATIENT
  Age: 73 Year
  Sex: Male

DRUGS (5)
  1. HEPARIN SODIUM [Suspect]
     Active Substance: HEPARIN SODIUM
     Dosage: UNK
     Dates: start: 20230830
  2. CANDESARTAN [Concomitant]
     Active Substance: CANDESARTAN
     Indication: Hypertension
     Dosage: 8 MG, DAILY
     Dates: start: 20230829
  3. ASPIRIN [Concomitant]
     Active Substance: ASPIRIN
     Indication: Hypertension
     Dosage: 81 MG, DAILY
     Dates: start: 20230904
  4. METOPROLOL [Concomitant]
     Active Substance: METOPROLOL
     Indication: Hypertension
     Dosage: 25 MG, DAILY
     Dates: start: 20230904
  5. ACETAMINOPHEN [Concomitant]
     Active Substance: ACETAMINOPHEN
     Dosage: 500 MG, PRN

REACTIONS (23)
  - Heparin-induced thrombocytopenia [Fatal]
  - Acute kidney injury [Unknown]
  - Cerebrovascular accident [Unknown]
  - Cerebral haemorrhage [Unknown]
  - Hemiplegia [Unknown]
  - Pneumonia [Unknown]
  - Haemoglobin decreased [Unknown]
  - Pain [Unknown]
  - Haemoptysis [Unknown]
  - Thrombosis [Unknown]
  - Mobility decreased [Unknown]
  - Feeling cold [Unknown]
  - Asthenia [Unknown]
  - Malaise [Unknown]
  - Petechiae [Unknown]
  - Cough [Unknown]
  - Pyrexia [Unknown]
  - Presyncope [Unknown]
  - Inflammation [Unknown]
  - Discomfort [Unknown]
  - Bone marrow disorder [Unknown]
  - Hypersomnia [Unknown]
  - Somnolence [Unknown]

NARRATIVE: CASE EVENT DATE: 20230905
